FAERS Safety Report 4307689-6 (Version None)
Quarter: 2004Q1

REPORT INFORMATION
  Report Type: 
  Country: None (occurrence: None)
  Receive Date: 20040227
  Receipt Date: 20040227
  Transmission Date: 20041129
  Serious: Yes (Hospitalization)
  Sender: FDA-Public Use
  Company Number: None

PATIENT
  Age: 77 Year
  Sex: Male
  Weight: 63.5 kg

DRUGS (3)
  1. WARFARIN SODIUM [Suspect]
  2. ASPIRIN [Concomitant]
  3. TRIMETHOPRIM 160 MG/SULFAMETH [Concomitant]

REACTIONS (1)
  - HAEMATEMESIS [None]
